FAERS Safety Report 10197813 (Version 2)
Quarter: 2015Q1

REPORT INFORMATION
  Report Type: Report from Study
  Country: CZ (occurrence: CZ)
  Receive Date: 20140527
  Receipt Date: 20150326
  Transmission Date: 20150720
  Serious: Yes (Hospitalization)
  Sender: FDA-Public Use
  Company Number: CZ-BRISTOL-MYERS SQUIBB COMPANY-20810115

PATIENT
  Age: 66 Year
  Sex: Female

DRUGS (13)
  1. RANITIDINE [Concomitant]
     Active Substance: RANITIDINE\RANITIDINE HYDROCHLORIDE
     Indication: PROPHYLAXIS
     Dosage: 50 MG, UNK
     Route: 042
     Dates: start: 20130925
  2. DITHIADEN [Concomitant]
     Active Substance: BISULEPIN
     Indication: PROPHYLAXIS
     Dosage: 1 MG, UNK
     Route: 030
     Dates: start: 20131002
  3. SINGULAIR [Concomitant]
     Active Substance: MONTELUKAST SODIUM
     Indication: ASTHMA
     Dosage: DOSE 1 OTHER
     Route: 048
     Dates: start: 20140510
  4. LETROX [Concomitant]
     Indication: HYPOTHYROIDISM
     Dosage: 1DF:75UG
     Route: 048
     Dates: start: 2003
  5. BUDIAIR [Concomitant]
     Indication: ASTHMA
     Dosage: 1DF:200UG
     Route: 055
     Dates: start: 1997
  6. DEXAMETHASONE. [Concomitant]
     Active Substance: DEXAMETHASONE
     Indication: PROPHYLAXIS
     Dosage: 20 MG, UNK
     Route: 042
     Dates: start: 20130925
  7. ATROVENT [Concomitant]
     Active Substance: IPRATROPIUM BROMIDE
     Indication: ASTHMA
     Dosage: .5 MG, UNK
     Route: 055
     Dates: start: 1997
  8. XYZAL [Concomitant]
     Active Substance: LEVOCETIRIZINE DIHYDROCHLORIDE
     Indication: ASTHMA
     Dosage: 5 MG, UNK
     Route: 048
     Dates: start: 2008
  9. ZOREM                              /00885601/ [Concomitant]
     Indication: HYPERTENSION
     Dosage: 10 MG, UNK
     Route: 048
     Dates: start: 2011
  10. ZODAC [Concomitant]
     Indication: ASTHMA
     Dosage: 1 DF, UNK
     Route: 048
     Dates: start: 20140402
  11. ATIMOS [Concomitant]
     Active Substance: FORMOTEROL
     Indication: ASTHMA
     Dosage: 1DF:12UG
     Route: 055
     Dates: start: 1997
  12. BELODERM                           /00008501/ [Concomitant]
     Indication: ERYTHEMA
     Dosage: UNK
     Route: 061
     Dates: start: 20140418, end: 20140503
  13. PACLITAXEL. [Suspect]
     Active Substance: PACLITAXEL
     Indication: BREAST CANCER METASTATIC
     Dosage: 90 MG/M2, QWK
     Route: 042
     Dates: start: 20130925

REACTIONS (1)
  - Venous thrombosis limb [Recovered/Resolved]

NARRATIVE: CASE EVENT DATE: 20140509
